FAERS Safety Report 9393092 (Version 1)
Quarter: 2013Q3

REPORT INFORMATION
  Report Type: Spontaneous
  Country: NL (occurrence: NL)
  Receive Date: 20130710
  Receipt Date: 20130710
  Transmission Date: 20140515
  Serious: Yes (Death)
  Sender: FDA-Public Use
  Company Number: NL-AMGEN-NLDSP2013048120

PATIENT
  Age: 73 Year
  Sex: 0

DRUGS (3)
  1. ARANESP [Suspect]
     Indication: ANAEMIA
     Dosage: 500 UNK, Q3WK
     Route: 058
     Dates: start: 20120816
  2. ARANESP [Suspect]
     Indication: NEOPLASM MALIGNANT
  3. XGEVA [Suspect]
     Indication: BONE DISORDER
     Dosage: 120 UNK, Q4WK
     Route: 058
     Dates: start: 20130122

REACTIONS (1)
  - Death [Fatal]
